FAERS Safety Report 13261699 (Version 1)
Quarter: 2017Q1

REPORT INFORMATION
  Report Type: Spontaneous
  Country: US (occurrence: JP)
  Receive Date: 20170222
  Receipt Date: 20170222
  Transmission Date: 20170428
  Serious: Yes (Other)
  Sender: FDA-Public Use
  Company Number: PHHY2017JP025389

PATIENT
  Age: 83 Year
  Sex: Female

DRUGS (1)
  1. AMPICILLIN+SULBACTAM [Suspect]
     Active Substance: AMPICILLIN SODIUM\SULBACTAM SODIUM
     Indication: LEPTOSPIROSIS
     Route: 065

REACTIONS (1)
  - Jarisch-Herxheimer reaction [Unknown]
